FAERS Safety Report 18775415 (Version 1)
Quarter: 2021Q1

REPORT INFORMATION
  Report Type: Spontaneous
  Country: CH (occurrence: GB)
  Receive Date: 20210122
  Receipt Date: 20210122
  Transmission Date: 20210419
  Serious: Yes (Death, Life-Threatening, Hospitalization, Other)
  Sender: FDA-Public Use
  Company Number: GB-ASTELLAS-2021US002317

PATIENT
  Age: 77 Year
  Sex: Male
  Weight: 102 kg

DRUGS (4)
  1. ADRENALINE [EPINEPHRINE] [Concomitant]
     Active Substance: EPINEPHRINE
     Indication: SHOCK
     Dosage: UNK UNK, UNKNOWN FREQ.
     Route: 065
     Dates: start: 20190914
  2. ISAVUCONAZOLE [Suspect]
     Active Substance: ISAVUCONAZOLE
     Indication: MUCORMYCOSIS
     Dosage: UNK UNK, UNKNOWN FREQ.
     Route: 042
     Dates: start: 20190910, end: 20190914
  3. DOBUTAMINE [Concomitant]
     Active Substance: DOBUTAMINE HYDROCHLORIDE
     Indication: SHOCK
     Dosage: UNK UNK, UNKNOWN FREQ (12 HOURS)
     Route: 065
     Dates: start: 20190914
  4. NORADRENALINE (NORPINEPHRINE) [Concomitant]
     Active Substance: NOREPINEPHRINE
     Indication: SHOCK
     Dosage: UNK UNK, UNKNOWN FREQ (12 HOURS).
     Route: 065
     Dates: start: 20190914

REACTIONS (1)
  - Acute myocardial infarction [Fatal]

NARRATIVE: CASE EVENT DATE: 20190914
